FAERS Safety Report 9384195 (Version 1)
Quarter: 2013Q3

REPORT INFORMATION
  Report Type: Spontaneous
  Country: US (occurrence: US)
  Receive Date: 20130705
  Receipt Date: 20130705
  Transmission Date: 20140515
  Serious: No
  Sender: FDA-Public Use
  Company Number: US-B.I. PHARMACEUTICALS,INC./RIDGEFIELD-2013-BI-19071BP

PATIENT
  Age: 47 Year
  Sex: Male
  Weight: 116 kg

DRUGS (2)
  1. MICARDIS [Suspect]
     Indication: HYPERTENSION
     Dosage: 40 MG
     Route: 048
     Dates: start: 2009
  2. DILANTIN [Concomitant]
     Indication: EPILEPSY
     Dosage: 300 MG
     Route: 048
     Dates: start: 1986

REACTIONS (3)
  - Skin discolouration [Not Recovered/Not Resolved]
  - Swelling face [Not Recovered/Not Resolved]
  - Swelling face [Not Recovered/Not Resolved]
